FAERS Safety Report 9167939 (Version 1)
Quarter: 2013Q1

REPORT INFORMATION
  Report Type: Spontaneous
  Country: DE (occurrence: None)
  Receive Date: 20130307
  Receipt Date: 20130307
  Transmission Date: 20140127
  Serious: Yes (Hospitalization, Other)
  Sender: FDA-Public Use
  Company Number: GER/GER/13/0028323

PATIENT
  Age: 59 Year
  Sex: Female
  Weight: 60 kg

DRUGS (5)
  1. SIMVASTATIN (SIMVASTATIN) [Suspect]
     Indication: PRODUCT USED FOR UNKNOWN INDICATION
     Route: 048
  2. FLUPIRTINE MALEATE [Suspect]
     Indication: PRODUCT USED FOR UNKNOWN INDICATION
     Route: 048
  3. ASS 100 (ACETYLSALICYCLIC ACID) [Concomitant]
  4. METO HENNIG 100 MG (METOPROLOL TARTRATE) [Concomitant]
  5. RAMILICH 5 MG TABLETTEN [Concomitant]

REACTIONS (4)
  - Rhabdomyolysis [None]
  - Myalgia [None]
  - Jaundice [None]
  - Drug interaction [None]
